FAERS Safety Report 20246578 (Version 1)
Quarter: 2022Q1

REPORT INFORMATION
  Report Type: Spontaneous
  Country: None (occurrence: US)
  Receive Date: 20211229
  Receipt Date: 20211229
  Transmission Date: 20220423
  Serious: No
  Sender: FDA-Public Use
  Company Number: US-Matrixx Initiatives, Inc.-2123456

PATIENT
  Age: 50 Year
  Sex: Female
  Weight: 74.545 kg

DRUGS (2)
  1. ZICAM COLD REMEDY NASAL SWABS (HOMEOPATHICS) [Suspect]
     Active Substance: HOMEOPATHICS\ZINC ACETATE\ZINC GLUCONATE
     Indication: Nasopharyngitis
     Route: 045
     Dates: start: 20211225, end: 20211227
  2. Unspecified Anti- inflammatory medication for ulcerative colitis [Concomitant]

REACTIONS (1)
  - Anosmia [None]
